FAERS Safety Report 5835284-6 (Version None)
Quarter: 2008Q3

REPORT INFORMATION
  Report Type: 
  Country: None (occurrence: None)
  Receive Date: 20080804
  Receipt Date: 20080725
  Transmission Date: 20090109
  Serious: Yes (Other)
  Sender: FDA-Public Use
  Company Number: CHNY2008JP02895

PATIENT
  Age: 65 Year
  Sex: Female

DRUGS (2)
  1. NICOTINELL TTS [Suspect]
     Indication: SMOKING CESSATION THERAPY
     Dosage: 21 MG, PRN, TRANSDERMAL
     Route: 062
  2. VITAMINS NOS (VITAMINS NOS) [Concomitant]

REACTIONS (4)
  - AMNESIA [None]
  - BLOOD PRESSURE INCREASED [None]
  - LOSS OF CONSCIOUSNESS [None]
  - TREATMENT NONCOMPLIANCE [None]
